FAERS Safety Report 8548841-3 (Version None)
Quarter: 2012Q3

REPORT INFORMATION
  Report Type: 
  Country: None (occurrence: None)
  Receive Date: 20120730
  Receipt Date: 20120720
  Transmission Date: 20120928
  Serious: Yes (Hospitalization)
  Sender: FDA-Public Use
  Company Number: US-US-EMD SERONO, INC.-7140645

PATIENT
  Sex: Female
  Weight: 75 kg

DRUGS (3)
  1. REBIF [Suspect]
     Indication: MULTIPLE SCLEROSIS
     Route: 058
     Dates: start: 20110721
  2. REBIF [Suspect]
     Route: 058
  3. LISINOPRIL [Suspect]
     Indication: HYPERTENSION
     Dates: start: 20110101, end: 20120701

REACTIONS (4)
  - DYSURIA [None]
  - RENAL FAILURE [None]
  - DEHYDRATION [None]
  - INJECTION SITE ERYTHEMA [None]
